FAERS Safety Report 8159048 (Version 2)
Quarter: 2015Q2

REPORT INFORMATION
  Report Type: Spontaneous
  Country: US (occurrence: US)
  Receive Date: 20110927
  Receipt Date: 20150611
  Transmission Date: 20150821
  Serious: Yes (Congenital Anomaly, Other)
  Sender: FDA-Public Use
  Company Number: US-ELI_LILLY_AND_COMPANY-US201109004207

PATIENT
  Sex: Female

DRUGS (1)
  1. PROZAC [Suspect]
     Active Substance: FLUOXETINE HYDROCHLORIDE
     Indication: PRODUCT USED FOR UNKNOWN INDICATION
     Dosage: UNK
     Route: 064

REACTIONS (6)
  - Hydrocephalus [Unknown]
  - Paralysis [Unknown]
  - Arnold-Chiari malformation [Unknown]
  - Exposure during pregnancy [Recovered/Resolved]
  - Meningomyelocele [Unknown]
  - Tethered cord syndrome [Unknown]
